FAERS Safety Report 7098084-8 (Version None)
Quarter: 2010Q4

REPORT INFORMATION
  Report Type: 
  Country: None (occurrence: None)
  Receive Date: 20101105
  Receipt Date: 20101025
  Transmission Date: 20110411
  Serious: Yes (Other)
  Sender: FDA-Public Use
  Company Number: 2010P1002243

PATIENT
  Age: 53 Year
  Sex: Male

DRUGS (3)
  1. AMPHETAMINE SALTS (NO PREF. NAME) [Suspect]
     Indication: ATTENTION DEFICIT/HYPERACTIVITY DISORDER
     Dosage: 5 MG;QD;PO ; 15 MG;BID;PO
     Route: 048
  2. CON MEDS [Concomitant]
  3. PREV MEDS [Concomitant]

REACTIONS (1)
  - HAEMORRHAGIC STROKE [None]
